FAERS Safety Report 20140758 (Version 1)
Quarter: 2021Q4

REPORT INFORMATION
  Report Type: Spontaneous
  Country: CN (occurrence: CN)
  Receive Date: 20211202
  Receipt Date: 20211202
  Transmission Date: 20220303
  Serious: Yes (Hospitalization, Other)
  Sender: FDA-Public Use
  Company Number: CN-PFIZER INC-202101655675

PATIENT
  Age: 28 Year
  Sex: Female
  Weight: 44 kg

DRUGS (4)
  1. METHOTREXATE [Suspect]
     Active Substance: METHOTREXATE
     Indication: Leukaemia
     Dosage: 1.35 G, 1X/DAY
     Route: 041
     Dates: start: 20211102, end: 20211102
  2. ETOPOSIDE [Suspect]
     Active Substance: ETOPOSIDE
     Indication: Leukaemia
     Dosage: 100 MG, 1X/DAY
     Route: 041
     Dates: start: 20211103, end: 20211105
  3. IFOSFAMIDE [Suspect]
     Active Substance: IFOSFAMIDE
     Indication: Leukaemia
     Dosage: 1.35 G, 1X/DAY
     Route: 041
     Dates: start: 20211103, end: 20211105
  4. DEXAMETHASONE [Suspect]
     Active Substance: DEXAMETHASONE
     Dosage: 40 MG
     Dates: start: 20211103, end: 20211105

REACTIONS (4)
  - Myelosuppression [Recovering/Resolving]
  - Platelet count decreased [Unknown]
  - Gingival bleeding [Unknown]
  - Asthenia [Unknown]

NARRATIVE: CASE EVENT DATE: 20211113
